FAERS Safety Report 4482180-5 (Version None)
Quarter: 2004Q4

REPORT INFORMATION
  Report Type: 
  Country: None (occurrence: None)
  Receive Date: 20041020
  Receipt Date: 20041011
  Transmission Date: 20050328
  Serious: Yes (Other)
  Sender: FDA-Public Use
  Company Number: 2004076880

PATIENT
  Age: 75 Year
  Sex: Male

DRUGS (4)
  1. TAHOR (ATORVASTATIN) [Suspect]
     Indication: HYPERCHOLESTEROLAEMIA
     Dates: end: 20040601
  2. NICARDIPINE (NICARDIPINE) [Concomitant]
  3. BENAZEPRIL HCL [Concomitant]
  4. CLOPIDOGREL (CLOPIDOGREL) [Concomitant]

REACTIONS (4)
  - INFLAMMATION [None]
  - MYALGIA [None]
  - PERICARDIAL DISEASE [None]
  - PERICARDITIS [None]
